FAERS Safety Report 4659504-9 (Version None)
Quarter: 2005Q2

REPORT INFORMATION
  Report Type: 
  Country: None (occurrence: None)
  Receive Date: 20050511
  Receipt Date: 20050429
  Transmission Date: 20051028
  Serious: Yes (Other)
  Sender: FDA-Public Use
  Company Number: CHNY2005CA00896

PATIENT
  Sex: Female

DRUGS (1)
  1. BUCKLEY'S DM [Suspect]
     Indication: THROAT IRRITATION
     Dosage: ORAL
     Route: 048

REACTIONS (3)
  - DRUG ABUSER [None]
  - INTENTIONAL MISUSE [None]
  - NO ADVERSE DRUG EFFECT [None]
